FAERS Safety Report 25435520 (Version 2)
Quarter: 2025Q3

REPORT INFORMATION
  Report Type: Spontaneous
  Country: CH (occurrence: CH)
  Receive Date: 20250613
  Receipt Date: 20250924
  Transmission Date: 20251020
  Serious: Yes (Other)
  Sender: NOVO NORDISK
  Company Number: CH-NOVOPROD-1456607

PATIENT
  Age: 18 Year
  Sex: Female
  Weight: 79 kg

DRUGS (3)
  1. RYBELSUS [Suspect]
     Active Substance: SEMAGLUTIDE
     Indication: Type 2 diabetes mellitus
     Dosage: 14 MG, QD
     Route: 048
     Dates: start: 2023
  2. RYBELSUS [Suspect]
     Active Substance: SEMAGLUTIDE
     Indication: Obesity
  3. RISPERIDONE [Concomitant]
     Active Substance: RISPERIDONE
     Indication: Smith-Magenis syndrome

REACTIONS (2)
  - Smith-Magenis syndrome [Recovering/Resolving]
  - Condition aggravated [Recovering/Resolving]
